FAERS Safety Report 18969995 (Version 2)
Quarter: 2021Q1

REPORT INFORMATION
  Report Type: Spontaneous
  Country: DK (occurrence: DK)
  Receive Date: 20210304
  Receipt Date: 20210325
  Transmission Date: 20210420
  Serious: Yes (Hospitalization, Other)
  Sender: FDA-Public Use
  Company Number: DK-BAYER-2021-089195

PATIENT
  Age: 28 Year
  Sex: Female

DRUGS (1)
  1. JAYDESS [Suspect]
     Active Substance: LEVONORGESTREL
     Dosage: 14 ?G PER DAY CONTINUOSLY
     Route: 015
     Dates: start: 201901

REACTIONS (6)
  - Ectopic pregnancy with contraceptive device [None]
  - Intra-abdominal haemorrhage [Recovered/Resolved]
  - Ruptured ectopic pregnancy [None]
  - Drug ineffective [None]
  - Abdominal pain lower [None]
  - Haemorrhage in pregnancy [None]

NARRATIVE: CASE EVENT DATE: 202102
